FAERS Safety Report 8041998 (Version 16)
Quarter: 2015Q1

REPORT INFORMATION
  Report Type: Report from Study
  Country: CA (occurrence: CA)
  Receive Date: 20110718
  Receipt Date: 20150317
  Transmission Date: 20150721
  Serious: Yes (Hospitalization, Other)
  Sender: FDA-Public Use
  Company Number: PHHY2011CA62209

PATIENT
  Age: 81 Year
  Sex: Female

DRUGS (2)
  1. SANDOSTATIN [Suspect]
     Active Substance: OCTREOTIDE ACETATE
     Indication: CARCINOID TUMOUR
     Route: 058
  2. SANDOSTATIN LAR DEPOT [Suspect]
     Active Substance: OCTREOTIDE ACETATE
     Indication: CARCINOID TUMOUR
     Dosage: 20 MG, EVERY 4 WEEKS
     Route: 030
     Dates: start: 20110705

REACTIONS (26)
  - Nocturia [Unknown]
  - White blood cell count increased [Unknown]
  - Dyspnoea [Unknown]
  - Tremor [Recovered/Resolved]
  - Loss of control of legs [Unknown]
  - Blood pressure systolic increased [Unknown]
  - Rales [Unknown]
  - Body temperature decreased [Unknown]
  - Blood glucose increased [Unknown]
  - Liver abscess [Unknown]
  - Facial pain [Unknown]
  - Malaise [Unknown]
  - Wheezing [Unknown]
  - Diarrhoea [Unknown]
  - Urinary tract infection [Unknown]
  - Injection site haemorrhage [Recovered/Resolved]
  - Discomfort [Unknown]
  - Lethargy [Unknown]
  - Nausea [Recovered/Resolved]
  - Injection site pain [Unknown]
  - Blood pressure diastolic decreased [Unknown]
  - Haemoglobin decreased [Unknown]
  - Rectal haemorrhage [Recovered/Resolved]
  - Blood creatinine increased [Unknown]
  - Vomiting [Recovered/Resolved]
  - Fatigue [Unknown]

NARRATIVE: CASE EVENT DATE: 20141014
